FAERS Safety Report 7400162 (Version 3)
Quarter: 2015Q2

REPORT INFORMATION
  Report Type: Spontaneous
  Country: US (occurrence: US)
  Receive Date: 20100517
  Receipt Date: 20150402
  Transmission Date: 20150821
  Serious: Yes (Other)
  Sender: FDA-Public Use
  Company Number: US-JNJFOC-20100502111

PATIENT
  Sex: Male

DRUGS (3)
  1. INFANTS TYLENOL [Suspect]
     Active Substance: ACETAMINOPHEN
     Indication: PYREXIA
     Route: 048
  2. INFANTS TYLENOL [Suspect]
     Active Substance: ACETAMINOPHEN
     Route: 048
  3. EYE DROPS [Concomitant]
     Active Substance: TETRAHYDROZOLINE HYDROCHLORIDE
     Indication: EYE INFECTION

REACTIONS (10)
  - Bacterial infection [Unknown]
  - Wheezing [Unknown]
  - Pyrexia [Unknown]
  - Drug ineffective [Unknown]
  - Labyrinthitis [Unknown]
  - Respiratory tract congestion [Unknown]
  - Product quality issue [Unknown]
  - Malaise [Unknown]
  - Suspected transmission of an infectious agent via product [Unknown]
  - Eye infection [Unknown]
